FAERS Safety Report 5442623-7 (Version None)
Quarter: 2007Q3

REPORT INFORMATION
  Report Type: 
  Country: None (occurrence: None)
  Receive Date: 20070904
  Receipt Date: 20070821
  Transmission Date: 20080115
  Serious: Yes (Hospitalization)
  Sender: FDA-Public Use
  Company Number: US-SHR-US-2007-031574

PATIENT
  Age: 56 Year
  Sex: Female

DRUGS (3)
  1. BETASERON [Suspect]
     Indication: RELAPSING-REMITTING MULTIPLE SCLEROSIS
     Route: 058
     Dates: start: 20061130, end: 20070106
  2. BETASERON [Suspect]
     Route: 058
     Dates: start: 20070118, end: 20070325
  3. BETASERON [Suspect]
     Dosage: 8 MIU, EVERY 2D
     Route: 058
     Dates: start: 20070504, end: 20070730

REACTIONS (5)
  - BLOOD POTASSIUM DECREASED [None]
  - CONVULSION [None]
  - FALL [None]
  - MOBILITY DECREASED [None]
  - PANCREATITIS [None]
